FAERS Safety Report 18213086 (Version 1)
Quarter: 2020Q3

REPORT INFORMATION
  Report Type: Spontaneous
  Country: US (occurrence: US)
  Receive Date: 20200831
  Receipt Date: 20200831
  Transmission Date: 20201103
  Serious: Yes (Other)
  Sender: FDA-Public Use
  Company Number: US-CORCEPT THERAPEUTICS INC.-US-2020CRT000992

PATIENT
  Sex: Female

DRUGS (2)
  1. KORLYM [Suspect]
     Active Substance: MIFEPRISTONE
     Indication: HYPERGLYCAEMIA
     Dosage: 600 MG, QD
     Route: 048
  2. KORLYM [Suspect]
     Active Substance: MIFEPRISTONE
     Indication: PITUITARY-DEPENDENT CUSHING^S SYNDROME

REACTIONS (1)
  - Hyperreactio luteinalis [Unknown]
